FAERS Safety Report 8831504 (Version 1)
Quarter: 2012Q4

REPORT INFORMATION
  Report Type: 
  Country: JP (occurrence: JP)
  Receive Date: 20121008
  Receipt Date: 20121008
  Transmission Date: 20130627
  Serious: Yes (Hospitalization)
  Sender: FDA-Public Use
  Company Number: JP-GLAXOSMITHKLINE-B0809051A

PATIENT
  Age: 37 None
  Sex: Male

DRUGS (7)
  1. LAMICTAL [Suspect]
     Indication: BIPOLAR DISORDER
     Dosage: 200MG Per day
     Route: 048
     Dates: start: 20120127
  2. LAMICTAL [Suspect]
     Indication: BIPOLAR DISORDER
     Dosage: 50MG Per day
     Route: 048
     Dates: end: 20120605
  3. LITHIUM CARBONATE [Suspect]
     Indication: BIPOLAR DISORDER
     Dosage: 400MG Twice per day
     Route: 048
     Dates: start: 20110905
  4. LITHIUM CARBONATE [Suspect]
     Indication: BIPOLAR DISORDER
     Route: 048
     Dates: end: 20120619
  5. ZYPREXA [Concomitant]
     Indication: BIPOLAR DISORDER
     Route: 048
     Dates: end: 20120513
  6. ZYPREXA [Concomitant]
     Indication: BIPOLAR DISORDER
     Route: 048
     Dates: start: 20120514
  7. LENDORMIN [Concomitant]
     Indication: INSOMNIA
     Dosage: .5MG Per day
     Route: 048

REACTIONS (6)
  - Bipolar disorder [Unknown]
  - Mania [Recovered/Resolved]
  - Mania [Unknown]
  - Irritability [Unknown]
  - Aggression [Unknown]
  - Tremor [Unknown]
